FAERS Safety Report 6968498-2 (Version None)
Quarter: 2010Q3

REPORT INFORMATION
  Report Type: 
  Country: None (occurrence: None)
  Receive Date: 20100903
  Receipt Date: 20100903
  Transmission Date: 20110219
  Serious: Yes (Other)
  Sender: FDA-Public Use
  Company Number: None

PATIENT
  Age: 53 Year
  Sex: Female
  Weight: 83.9154 kg

DRUGS (1)
  1. BUDEPRION SL TABLETS 150 MG [Suspect]
     Indication: DEPRESSION
     Dosage: ONE TABLET DAILY PO
     Route: 048
     Dates: start: 20100826, end: 20100827

REACTIONS (1)
  - URTICARIA [None]
